FAERS Safety Report 4647935-2 (Version None)
Quarter: 2005Q2

REPORT INFORMATION
  Report Type: 
  Country: None (occurrence: None)
  Receive Date: 20050428
  Receipt Date: 20050414
  Transmission Date: 20051028
  Serious: Yes (Hospitalization)
  Sender: FDA-Public Use
  Company Number: US-KINGPHARMUSA00001-K200500497

PATIENT
  Age: 48 Year
  Sex: Female

DRUGS (2)
  1. SONATA [Suspect]
     Dosage: 14 TABLETS/10 MG EACH, SINGLE
     Route: 048
     Dates: start: 20050412, end: 20050412
  2. ZELDOX /GFR/ [Suspect]
     Dosage: 30 TABLETS/80 MG EACH, SINGLE
     Route: 048
     Dates: start: 20050412, end: 20050412

REACTIONS (3)
  - INTENTIONAL MISUSE [None]
  - OVERDOSE [None]
  - SOMNOLENCE [None]
